FAERS Safety Report 9853949 (Version 3)
Quarter: 2014Q1

REPORT INFORMATION
  Report Type: Spontaneous
  Country: US (occurrence: US)
  Receive Date: 20140129
  Receipt Date: 20140227
  Transmission Date: 20141002
  Serious: Yes (Other)
  Sender: FDA-Public Use
  Company Number: US-PFIZER INC-2014027434

PATIENT
  Age: 51 Year
  Sex: Female

DRUGS (1)
  1. GEODON [Suspect]
     Dosage: UNK
     Dates: start: 200910

REACTIONS (2)
  - Electrocardiogram QT prolonged [Unknown]
  - Drug hypersensitivity [Unknown]
